FAERS Safety Report 10742239 (Version 1)
Quarter: 2015Q1

REPORT INFORMATION
  Report Type: Spontaneous
  Country: US (occurrence: None)
  Receive Date: 20150123
  Receipt Date: 20150123
  Transmission Date: 20150721
  Serious: No
  Sender: FDA-Public Use
  Company Number: None

PATIENT
  Age: 34 Year
  Sex: Female
  Weight: 58.97 kg

DRUGS (2)
  1. HEPARIN SODIUM INJECTION, USP 5000 USP/0.5ML HOSPIRA [Suspect]
     Active Substance: HEPARIN SODIUM
     Indication: FACTOR V LEIDEN MUTATION
     Dosage: INJECTING 5,000 UNITS 2X A DAY, TWICE DAILY, GIVEN I NTO/UNDER THE SKIN
     Route: 058
     Dates: start: 20150105, end: 20150121
  2. HEPARIN SODIUM INJECTION, USP 5000 USP/0.5ML HOSPIRA [Suspect]
     Active Substance: HEPARIN SODIUM
     Dosage: INJECTING 5,000 UNITS 2X A DAY, TWICE DAILY, GIVEN I NTO/UNDER THE SKIN
     Route: 058
     Dates: start: 20150105, end: 20150121

REACTIONS (3)
  - Injection site pain [None]
  - Exposure during pregnancy [None]
  - Product quality issue [None]

NARRATIVE: CASE EVENT DATE: 20150120
